FAERS Safety Report 13285665 (Version 1)
Quarter: 2017Q1

REPORT INFORMATION
  Report Type: Spontaneous
  Country: US (occurrence: US)
  Receive Date: 20170301
  Receipt Date: 20170301
  Transmission Date: 20170428
  Serious: No
  Sender: FDA-Public Use
  Company Number: None

PATIENT
  Age: 58 Year
  Sex: Female

DRUGS (4)
  1. JAKAFI [Suspect]
     Active Substance: RUXOLITINIB
     Indication: MALAISE
     Route: 048
     Dates: start: 20170207
  2. JAKAFI [Suspect]
     Active Substance: RUXOLITINIB
     Indication: MYELOPROLIFERATIVE NEOPLASM
     Route: 048
     Dates: start: 20170207
  3. JAKAFI [Suspect]
     Active Substance: RUXOLITINIB
     Indication: FULL BLOOD COUNT INCREASED
     Route: 048
     Dates: start: 20170207
  4. JAKAFI [Suspect]
     Active Substance: RUXOLITINIB
     Indication: ANAEMIA
     Route: 048
     Dates: start: 20170207

REACTIONS (2)
  - Dysgeusia [None]
  - Glossodynia [None]

NARRATIVE: CASE EVENT DATE: 20170227
